FAERS Safety Report 14379160 (Version 3)
Quarter: 2018Q1

REPORT INFORMATION
  Report Type: Spontaneous
  Country: DE (occurrence: DE)
  Receive Date: 20180112
  Receipt Date: 20180215
  Transmission Date: 20180509
  Serious: Yes (Hospitalization, Other)
  Sender: FDA-Public Use
  Company Number: DE-WEST-WARD PHARMACEUTICALS CORP.-DE-H14001-17-05319

PATIENT
  Age: 82 Year
  Sex: Male
  Weight: 69 kg

DRUGS (22)
  1. CARBOPLATIN. [Suspect]
     Active Substance: CARBOPLATIN
     Indication: NON-SMALL CELL LUNG CANCER
     Dosage: 4.8 MG MIN/ML
     Route: 041
     Dates: start: 20170922
  2. ABRAXANE [Suspect]
     Active Substance: PACLITAXEL
     Route: 041
     Dates: start: 20170929
  3. GALANTAMINE 16 [Concomitant]
     Indication: DEMENTIA
     Route: 048
  4. METOPROLOL 95 [Concomitant]
     Indication: ATRIAL FIBRILLATION
     Route: 048
  5. CALCIUM D3 [Concomitant]
     Active Substance: CALCIUM\CHOLECALCIFEROL
     Indication: OSTEOPOROSIS
     Route: 048
  6. DEKRISTOL [Concomitant]
     Active Substance: CHOLECALCIFEROL
     Indication: OSTEOPOROSIS
     Route: 048
  7. LONQUEX [Concomitant]
     Active Substance: LIPEGFILGRASTIM
     Route: 058
     Dates: start: 20171202, end: 20171202
  8. ABRAXANE [Suspect]
     Active Substance: PACLITAXEL
     Route: 041
     Dates: start: 20170922, end: 20170929
  9. DIGITOXIN 0,07 [Concomitant]
     Indication: ATRIAL FIBRILLATION
     Route: 048
  10. INSUMAN RAPID [Concomitant]
     Active Substance: INSULIN HUMAN
     Indication: DIABETES MELLITUS
     Route: 058
  11. CARBOPLATIN. [Suspect]
     Active Substance: CARBOPLATIN
     Route: 041
     Dates: start: 20171020
  12. ABRAXANE [Suspect]
     Active Substance: PACLITAXEL
     Route: 041
     Dates: start: 20171020
  13. ULTIBRO [Concomitant]
     Active Substance: GLYCOPYRRONIUM\INDACATEROL
     Indication: DYSPNOEA
     Route: 055
  14. MILNANEURAX [Concomitant]
     Active Substance: MILNACIPRAN HYDROCHLORIDE
     Indication: DEMENTIA
     Route: 048
  15. PANTOZOL [Concomitant]
     Active Substance: PANTOPRAZOLE SODIUM
     Indication: PANCREATITIS CHRONIC
     Route: 048
  16. KREON 50000 [Concomitant]
     Indication: PANCREATITIS CHRONIC
     Route: 048
  17. HUMALOG MIX50/50 [Concomitant]
     Active Substance: INSULIN LISPRO
     Indication: DIABETES MELLITUS
     Route: 058
  18. ABRAXANE [Suspect]
     Active Substance: PACLITAXEL
     Indication: NON-SMALL CELL LUNG CANCER
     Route: 041
     Dates: start: 2017
  19. LONQUEX [Concomitant]
     Active Substance: LIPEGFILGRASTIM
     Indication: PROPHYLAXIS
     Route: 058
     Dates: start: 20171104, end: 20171104
  20. TRAMAL 50 [Concomitant]
     Indication: OSTEOPOROSIS
     Route: 048
  21. TOREM [Concomitant]
     Active Substance: TORSEMIDE
     Indication: HYPERTENSION
     Route: 048
  22. SPIOLTO [Concomitant]
     Active Substance: OLODATEROL HYDROCHLORIDE\TIOTROPIUM BROMIDE MONOHYDRATE
     Indication: DYSPNOEA
     Route: 055

REACTIONS (5)
  - Nausea [Recovering/Resolving]
  - General physical health deterioration [Recovered/Resolved]
  - Leukopenia [Unknown]
  - Off label use [Unknown]
  - Platelet count decreased [Unknown]

NARRATIVE: CASE EVENT DATE: 20170922
